FAERS Safety Report 25451297 (Version 1)
Quarter: 2025Q2

REPORT INFORMATION
  Report Type: Spontaneous
  Country: FR (occurrence: FR)
  Receive Date: 20250618
  Receipt Date: 20250618
  Transmission Date: 20250716
  Serious: Yes (Other)
  Sender: MYLAN
  Company Number: None

PATIENT
  Age: 31 Year
  Sex: Female

DRUGS (4)
  1. TRAMADOL HYDROCHLORIDE [Suspect]
     Active Substance: TRAMADOL HYDROCHLORIDE
     Indication: Product used for unknown indication
     Dosage: 150 MILLIGRAM, QD (3 CAPSULES OF 50 MG LI /DAY)
     Dates: start: 2016
  2. TRAMADOL HYDROCHLORIDE [Suspect]
     Active Substance: TRAMADOL HYDROCHLORIDE
     Dosage: 150 MILLIGRAM, QD (3 CAPSULES OF 50 MG LI /DAY)
     Route: 048
     Dates: start: 2016
  3. TRAMADOL HYDROCHLORIDE [Suspect]
     Active Substance: TRAMADOL HYDROCHLORIDE
     Dosage: 150 MILLIGRAM, QD (3 CAPSULES OF 50 MG LI /DAY)
     Route: 048
     Dates: start: 2016
  4. TRAMADOL HYDROCHLORIDE [Suspect]
     Active Substance: TRAMADOL HYDROCHLORIDE
     Dosage: 150 MILLIGRAM, QD (3 CAPSULES OF 50 MG LI /DAY)
     Dates: start: 2016

REACTIONS (2)
  - Substance use disorder [Not Recovered/Not Resolved]
  - Withdrawal syndrome [Recovered/Resolved]
